FAERS Safety Report 6174564-4 (Version None)
Quarter: 2009Q2

REPORT INFORMATION
  Report Type: 
  Country: None (occurrence: None)
  Receive Date: 20090430
  Receipt Date: 20080724
  Transmission Date: 20091009
  Serious: No
  Sender: FDA-Public Use
  Company Number: US-ASTRAZENECA-2008UW15425

PATIENT
  Age: 76 Year
  Sex: Female

DRUGS (4)
  1. NEXIUM [Suspect]
     Route: 048
  2. METOPROLOL TARTRATE [Concomitant]
  3. AMLODIPINE [Concomitant]
  4. BENZAPRIL [Concomitant]

REACTIONS (2)
  - BLOOD MAGNESIUM DECREASED [None]
  - VITAMIN B12 DECREASED [None]
